FAERS Safety Report 19724094 (Version 2)
Quarter: 2021Q3

REPORT INFORMATION
  Report Type: Spontaneous
  Country: NL (occurrence: NL)
  Receive Date: 20210819
  Receipt Date: 20210825
  Transmission Date: 20211014
  Serious: Yes (Other)
  Sender: FDA-Public Use
  Company Number: NL-MYLANLABS-2021M1052703

PATIENT
  Sex: Female
  Weight: 70 kg

DRUGS (6)
  1. TAMOXIFEN [Suspect]
     Active Substance: TAMOXIFEN
     Indication: BREAST CANCER
     Dosage: 20 MILLIGRAM, QD, 1 X 1 TABLET
     Dates: start: 20210114
  2. ZOLEDRONIC ACID [Suspect]
     Active Substance: ZOLEDRONIC ACID
     Indication: OSTEOPOROSIS
     Dosage: 1 DOSAGE FORM, IMM
     Dates: start: 20210428
  3. CALCIUM [Concomitant]
     Active Substance: CALCIUM
     Dosage: UNK
  4. MAGNESIUMHYDROXIDE [Concomitant]
     Dosage: UNK
  5. ZURE OORDRUPPELS MET TRIAMCINOLONAC. [Concomitant]
     Dosage: UNK
  6. ASTRAZENECA COVID?19 VACCINE [Suspect]
     Active Substance: AZD-1222
     Indication: IMMUNISATION
     Dosage: 1 DOSAGE FORM, INJECTION FLUID
     Dates: start: 2021

REACTIONS (1)
  - Hypothyroidism [Not Recovered/Not Resolved]
